FAERS Safety Report 25267014 (Version 3)
Quarter: 2025Q2

REPORT INFORMATION
  Report Type: Spontaneous
  Country: US (occurrence: US)
  Receive Date: 20250505
  Receipt Date: 20250624
  Transmission Date: 20250716
  Serious: Yes (Hospitalization, Other)
  Sender: SERVIER
  Company Number: US-SERVIER-S25005921

PATIENT

DRUGS (3)
  1. VORANIGO [Suspect]
     Active Substance: VORASIDENIB
     Indication: Astrocytoma
     Dosage: 40 MG, QD
     Route: 048
     Dates: start: 20241225, end: 20250321
  2. TRAMADOL [Concomitant]
     Active Substance: TRAMADOL
     Indication: Product used for unknown indication
     Route: 048
  3. METHYLPHENIDATE [Concomitant]
     Active Substance: METHYLPHENIDATE
     Indication: Product used for unknown indication
     Dosage: 10 MG, TID
     Route: 048

REACTIONS (13)
  - Autoimmune hepatitis [Recovering/Resolving]
  - Hepatic necrosis [Recovering/Resolving]
  - Drug-induced liver injury [Recovering/Resolving]
  - Aspartate aminotransferase increased [Recovering/Resolving]
  - Alanine aminotransferase increased [Recovering/Resolving]
  - Fatigue [Unknown]
  - Protein total increased [Recovered/Resolved]
  - Blood bilirubin increased [Recovered/Resolved]
  - Jaundice [Unknown]
  - Blood lactate dehydrogenase increased [Unknown]
  - Abdominal discomfort [Unknown]
  - Blood bilirubin increased [Recovering/Resolving]
  - Polycythaemia [Unknown]

NARRATIVE: CASE EVENT DATE: 20250101
